FAERS Safety Report 7366673-9 (Version None)
Quarter: 2011Q1

REPORT INFORMATION
  Report Type: 
  Country: None (occurrence: None)
  Receive Date: 20110322
  Receipt Date: 20110316
  Transmission Date: 20110831
  Serious: Yes (Hospitalization, Disabling, Other)
  Sender: FDA-Public Use
  Company Number: US-ROCHE-509521

PATIENT
  Sex: Female
  Weight: 43.1 kg

DRUGS (4)
  1. ACCUTANE [Suspect]
     Dosage: DOSE INCREASED; SCHEDULED TO CONTINUE FOR 5 MORE WEEKS FROM 16MAR2001.
     Route: 065
     Dates: start: 20001219, end: 20010420
  2. ACCUTANE [Suspect]
     Route: 065
     Dates: start: 20001122, end: 20001219
  3. ACCUTANE [Suspect]
     Indication: ACNE
     Route: 065
     Dates: start: 19981023, end: 19990326
  4. ORTHO TRI-CYCLEN [Concomitant]

REACTIONS (14)
  - INFLAMMATORY BOWEL DISEASE [None]
  - FATIGUE [None]
  - IRRITABLE BOWEL SYNDROME [None]
  - COLITIS ULCERATIVE [None]
  - ILEITIS [None]
  - BLOOD TRIGLYCERIDES INCREASED [None]
  - CROHN'S DISEASE [None]
  - DEPRESSION [None]
  - OVERGROWTH BACTERIAL [None]
  - GASTROINTESTINAL DISORDER [None]
  - PANIC ATTACK [None]
  - ANXIETY [None]
  - RESTLESSNESS [None]
  - LIP DRY [None]
